FAERS Safety Report 6963848-5 (Version None)
Quarter: 2010Q3

REPORT INFORMATION
  Report Type: 
  Country: None (occurrence: None)
  Receive Date: 20100830
  Receipt Date: 20100820
  Transmission Date: 20110219
  Serious: Yes (Hospitalization)
  Sender: FDA-Public Use
  Company Number: 017520

PATIENT
  Sex: Female
  Weight: 67 kg

DRUGS (5)
  1. CERTOLIZUMAB PEGOL (CERTOLIZUMAB PEGOL) [Suspect]
     Indication: RHEUMATOID ARTHRITIS
     Dosage: (200 MG, NBR OF DOSES: 9 SUBCUTANEOUS)
     Route: 058
     Dates: start: 20100430
  2. METEX [Concomitant]
  3. PREDNISOLONE [Concomitant]
  4. TRAMADOL HCL [Concomitant]
  5. TEBESIUM /00052401/ [Concomitant]

REACTIONS (1)
  - HERPES ZOSTER [None]
